FAERS Safety Report 5485984-5 (Version None)
Quarter: 2007Q4

REPORT INFORMATION
  Report Type: 
  Country: None (occurrence: None)
  Receive Date: 20071015
  Receipt Date: 20071011
  Transmission Date: 20080405
  Serious: Yes (Hospitalization)
  Sender: FDA-Public Use
  Company Number: US-MERCK-0707USA04216

PATIENT
  Age: 49 Year
  Sex: Female
  Weight: 110 kg

DRUGS (8)
  1. JANUVIA [Suspect]
     Indication: TYPE 2 DIABETES MELLITUS
     Route: 048
     Dates: start: 20070124, end: 20070628
  2. VESICARE [Concomitant]
     Indication: URINARY INCONTINENCE
     Route: 048
  3. PROTONIX [Concomitant]
     Indication: GASTROOESOPHAGEAL REFLUX DISEASE
     Route: 048
  4. GLIPIZIDE [Concomitant]
     Indication: TYPE 2 DIABETES MELLITUS
     Route: 048
  5. FOSINOPRIL SODIUM [Concomitant]
     Indication: HYPERTENSION
     Route: 048
  6. LOPRESSOR [Concomitant]
     Indication: HYPERTENSION
     Route: 048
  7. LIPITOR [Concomitant]
     Indication: BLOOD CHOLESTEROL INCREASED
     Route: 048
  8. ELAVIL [Concomitant]
     Indication: INSOMNIA
     Route: 048

REACTIONS (3)
  - BLOOD GLUCOSE INCREASED [None]
  - DIARRHOEA [None]
  - VOMITING [None]
